FAERS Safety Report 6372191-7 (Version None)
Quarter: 2009Q3

REPORT INFORMATION
  Report Type: 
  Country: None (occurrence: None)
  Receive Date: 20090924
  Receipt Date: 20071212
  Transmission Date: 20100115
  Serious: Yes (Other)
  Sender: FDA-Public Use
  Company Number: US-ASTRAZENECA-2007UW17826

PATIENT
  Age: 22763 Day
  Sex: Male
  Weight: 72.6 kg

DRUGS (10)
  1. SEROQUEL [Suspect]
     Indication: ANXIETY
     Route: 048
     Dates: start: 19991111
  2. SEROQUEL [Suspect]
     Indication: DEPRESSION
     Route: 048
     Dates: start: 19991111
  3. SEROQUEL [Suspect]
     Dosage: 100 MG DAILY, 100 MG 1.5 TABLET AT NIGHT
     Route: 048
     Dates: start: 19991111
  4. SEROQUEL [Suspect]
     Dosage: 100 MG DAILY, 100 MG 1.5 TABLET AT NIGHT
     Route: 048
     Dates: start: 19991111
  5. EFFEXOR XR [Concomitant]
     Dates: start: 19990520
  6. AVANDIA [Concomitant]
     Dates: start: 20000509
  7. AMARYL [Concomitant]
     Dosage: 4 MG DAILY, 4 MG 2 TABLET/ AM
     Dates: start: 20000509
  8. WARFARIN SODIUM [Concomitant]
     Dosage: 3 - 5 MG
     Dates: start: 19990510
  9. DEPAKOTE [Concomitant]
     Dosage: 500 - 1000 MG
     Dates: start: 19990520
  10. LIPITOR [Concomitant]
     Dosage: 10 MG/ SUPPER
     Dates: start: 20000825

REACTIONS (3)
  - DIABETES MELLITUS [None]
  - DIABETIC NEUROPATHY [None]
  - TYPE 2 DIABETES MELLITUS [None]
